FAERS Safety Report 9797201 (Version 1)
Quarter: 2014Q1

REPORT INFORMATION
  Report Type: Spontaneous
  Country: TR (occurrence: TR)
  Receive Date: 20140106
  Receipt Date: 20140106
  Transmission Date: 20141002
  Serious: Yes (Other)
  Sender: FDA-Public Use
  Company Number: PHHY2013TR151822

PATIENT
  Age: 32 Year
  Sex: Female

DRUGS (5)
  1. VALPROIC ACID [Suspect]
     Indication: CONVULSION
  2. HEPARIN [Suspect]
     Indication: ANTICOAGULANT THERAPY
  3. WARFARIN [Suspect]
     Indication: ANTICOAGULANT THERAPY
  4. AZATHIOPRINE [Concomitant]
  5. METHYLPREDNISOLONE [Concomitant]
     Route: 048

REACTIONS (3)
  - Gastrointestinal haemorrhage [Unknown]
  - Grand mal convulsion [Unknown]
  - Haemoglobin decreased [Unknown]
